FAERS Safety Report 8901637 (Version 1)
Quarter: 2012Q4

REPORT INFORMATION
  Report Type: Spontaneous
  Country: US (occurrence: None)
  Receive Date: 20121108
  Receipt Date: 20121108
  Transmission Date: 20130627
  Serious: Yes (Life-Threatening, Other)
  Sender: FDA-Public Use
  Company Number: None

PATIENT
  Age: 26 Year
  Sex: Male
  Weight: 74.84 kg

DRUGS (1)
  1. ACCUTANE [Suspect]
     Dates: start: 20120301, end: 20121001

REACTIONS (2)
  - Suicidal ideation [None]
  - Aggression [None]
